FAERS Safety Report 12976500 (Version 1)
Quarter: 2016Q4

REPORT INFORMATION
  Report Type: Report from Study
  Country: KR (occurrence: KR)
  Receive Date: 20161127
  Receipt Date: 20161127
  Transmission Date: 20170207
  Serious: Yes (Hospitalization, Disabling)
  Sender: FDA-Public Use
  Company Number: KR-GUERBET LLC-1060070

PATIENT
  Age: 55 Year
  Sex: Male

DRUGS (5)
  1. CEFTRIAXONE. [Concomitant]
     Active Substance: CEFTRIAXONE
  2. SOMATOSTATIN [Concomitant]
     Active Substance: SOMATOSTATIN
  3. LIPIODOL [Suspect]
     Active Substance: ETHIODIZED OIL
     Indication: HAEMOSTASIS
     Route: 042
  4. PANTOPRAZOLE SODIUM. [Concomitant]
     Active Substance: PANTOPRAZOLE SODIUM
  5. CYANOACRILATE [Concomitant]

REACTIONS (3)
  - Off label use [Not Recovered/Not Resolved]
  - Biliary tract disorder [Not Recovered/Not Resolved]
  - Portal vein phlebitis [Not Recovered/Not Resolved]
